FAERS Safety Report 5686301-8 (Version None)
Quarter: 2008Q1

REPORT INFORMATION
  Report Type: 
  Country: None (occurrence: None)
  Receive Date: 20080328
  Receipt Date: 20070723
  Transmission Date: 20080703
  Serious: No
  Sender: FDA-Public Use
  Company Number: US-BAYER-US-2007-027333

PATIENT
  Age: 43 Year
  Sex: Female
  Weight: 63 kg

DRUGS (2)
  1. MIRENA [Suspect]
     Route: 015
     Dates: start: 20061221, end: 20070425
  2. VITAMIN CAP [Concomitant]

REACTIONS (4)
  - MENORRHAGIA [None]
  - PAIN [None]
  - PRURITUS [None]
  - RASH [None]
